FAERS Safety Report 21552919 (Version 1)
Quarter: 2022Q4

REPORT INFORMATION
  Report Type: Spontaneous
  Country: US (occurrence: None)
  Receive Date: 20221104
  Receipt Date: 20221104
  Transmission Date: 20230113
  Serious: Yes (Other)
  Sender: FDA-Public Use
  Company Number: US-Merck Healthcare KGaA-9362530

PATIENT
  Sex: Female

DRUGS (3)
  1. REBIF [Suspect]
     Active Substance: INTERFERON BETA-1A
     Indication: Multiple sclerosis
     Dosage: WEEKS 1 AND 2: 1 PEN (8.8 MCG)
     Route: 058
     Dates: start: 20221007
  2. REBIF [Suspect]
     Active Substance: INTERFERON BETA-1A
     Dosage: WEEKS 3 AND 4: 1 PEN (22 MCG)
     Route: 058
  3. REBIF [Suspect]
     Active Substance: INTERFERON BETA-1A
     Dosage: 1 PEN (44 MCG) THEREAFTER.
     Route: 058

REACTIONS (1)
  - Major depression [Unknown]
